FAERS Safety Report 5583309-8 (Version None)
Quarter: 2008Q1

REPORT INFORMATION
  Report Type: 
  Country: None (occurrence: None)
  Receive Date: 20080107
  Receipt Date: 20071226
  Transmission Date: 20080703
  Serious: Yes (Death, Life-Threatening)
  Sender: FDA-Public Use
  Company Number: JP-PFIZER INC-2007090141

PATIENT
  Sex: Male
  Weight: 72 kg

DRUGS (9)
  1. ZOLOFT [Suspect]
     Indication: DEPRESSION
     Route: 048
     Dates: start: 20071005, end: 20071027
  2. SIMVASTATIN [Concomitant]
     Route: 048
     Dates: end: 20071022
  3. MAINTATE [Concomitant]
     Route: 048
     Dates: end: 20071022
  4. ITOROL [Concomitant]
     Route: 048
     Dates: end: 20071022
  5. PANALDINE [Concomitant]
     Route: 048
     Dates: end: 20071022
  6. ADALAT [Concomitant]
     Route: 048
     Dates: end: 20071022
  7. ASPIRIN [Concomitant]
     Route: 048
  8. MAGNESIUM OXIDE [Concomitant]
     Route: 048
  9. STARSIS [Concomitant]
     Route: 048

REACTIONS (2)
  - INAPPROPRIATE ANTIDIURETIC HORMONE SECRETION [None]
  - PNEUMONIA ASPIRATION [None]
